FAERS Safety Report 21805643 (Version 1)
Quarter: 2023Q1

REPORT INFORMATION
  Report Type: Report from Study
  Country: US (occurrence: US)
  Receive Date: 20230102
  Receipt Date: 20230102
  Transmission Date: 20230417
  Serious: Yes (Other)
  Sender: FDA-Public Use
  Company Number: US-002147023-NVSC2022US299778

PATIENT
  Age: 50 Year
  Sex: Male

DRUGS (8)
  1. AFINITOR [Suspect]
     Active Substance: EVEROLIMUS
     Indication: Anaplastic meningioma
     Dosage: UNK
     Route: 065
     Dates: end: 202205
  2. AFINITOR [Suspect]
     Active Substance: EVEROLIMUS
     Dosage: 20 MG, QD
     Route: 065
  3. AFINITOR [Suspect]
     Active Substance: EVEROLIMUS
     Dosage: 10 MG, QD
     Route: 065
     Dates: start: 202205
  4. SANDOSTATIN [Suspect]
     Active Substance: OCTREOTIDE ACETATE
     Indication: Anaplastic meningioma
     Dosage: UNK
     Route: 065
  5. SANDOSTATIN [Suspect]
     Active Substance: OCTREOTIDE ACETATE
  6. SANDOSTATIN [Suspect]
     Active Substance: OCTREOTIDE ACETATE
  7. HYDROXYUREA [Concomitant]
     Active Substance: HYDROXYUREA
     Indication: Anaplastic meningioma
     Dosage: UNK
     Route: 065
  8. KORLYM [Concomitant]
     Active Substance: MIFEPRISTONE
     Indication: Anaplastic meningioma
     Dosage: UNK
     Route: 065

REACTIONS (6)
  - Brain neoplasm [Unknown]
  - Anaplastic meningioma [Recovered/Resolved]
  - Malignant neoplasm progression [Recovered/Resolved]
  - General physical health deterioration [Unknown]
  - Incorrect dose administered [Unknown]
  - Off label use [Unknown]

NARRATIVE: CASE EVENT DATE: 20191101
